FAERS Safety Report 24419074 (Version 2)
Quarter: 2024Q4

REPORT INFORMATION
  Report Type: Spontaneous
  Country: CN (occurrence: CN)
  Receive Date: 20241009
  Receipt Date: 20241018
  Transmission Date: 20250115
  Serious: No
  Sender: ROCHE
  Company Number: CN-BoehringerIngelheim-2024-BI-002874

PATIENT
  Age: 39 Year
  Sex: Female
  Weight: 57.5 kg

DRUGS (2)
  1. ALTEPLASE [Suspect]
     Active Substance: ALTEPLASE
     Indication: Cerebral infarction
     Route: 040
     Dates: start: 20231219, end: 20231219
  2. WATER FOR INJECTION [Concomitant]
     Active Substance: WATER
     Indication: Drug therapy
     Route: 042
     Dates: start: 20231219, end: 20231219

REACTIONS (1)
  - Gingival bleeding [Recovering/Resolving]

NARRATIVE: CASE EVENT DATE: 20231219
